FAERS Safety Report 12939254 (Version 2)
Quarter: 2016Q4

REPORT INFORMATION
  Report Type: Spontaneous
  Country: TW (occurrence: TW)
  Receive Date: 20161115
  Receipt Date: 20161206
  Transmission Date: 20170207
  Serious: No
  Sender: FDA-Public Use
  Company Number: TW-AMGEN-TWNSP2016157741

PATIENT
  Age: 50 Year
  Sex: Female

DRUGS (3)
  1. ENBREL [Suspect]
     Active Substance: ETANERCEPT
     Dosage: 50 MG, 9X/12WEEKS
     Route: 058
     Dates: start: 201502
  2. ENBREL [Suspect]
     Active Substance: ETANERCEPT
     Indication: RHEUMATOID ARTHRITIS
     Dosage: 25 MG, 2X/WEEK
     Route: 058
     Dates: start: 201111, end: 201410
  3. ENBREL [Suspect]
     Active Substance: ETANERCEPT
     Dosage: 50 MG, WEEKLY
     Route: 058
     Dates: start: 201410, end: 201502

REACTIONS (3)
  - Arthralgia [Recovering/Resolving]
  - Erythema [Recovering/Resolving]
  - Vasculitis [Recovering/Resolving]

NARRATIVE: CASE EVENT DATE: 201610
